FAERS Safety Report 6654704-0 (Version None)
Quarter: 2010Q1

REPORT INFORMATION
  Report Type: 
  Country: None (occurrence: None)
  Receive Date: 20100326
  Receipt Date: 20100324
  Transmission Date: 20100710
  Serious: Yes (Hospitalization)
  Sender: FDA-Public Use
  Company Number: US-GILEAD-2010-0028093

PATIENT
  Sex: Male
  Weight: 145.28 kg

DRUGS (27)
  1. LETAIRIS [Suspect]
     Indication: PULMONARY ARTERIAL HYPERTENSION
     Route: 048
     Dates: start: 20091005
  2. REVATIO [Concomitant]
  3. ASPIRIN [Concomitant]
  4. PLAVIX [Concomitant]
  5. TORSEMIDE [Concomitant]
  6. CATAPRES [Concomitant]
  7. KLONOPIN [Concomitant]
  8. DILTIAZEM HCL [Concomitant]
  9. CARVEDILOL [Concomitant]
  10. SIMVASTATIN [Concomitant]
  11. TRICOR [Concomitant]
  12. FLUTICASONE PROPIONATE [Concomitant]
  13. LANTUS [Concomitant]
  14. GLIPIZIDE [Concomitant]
  15. FAMOTIDINE [Concomitant]
  16. MIRALAX [Concomitant]
  17. ROPINIROLE [Concomitant]
  18. ALLOPURINOL [Concomitant]
  19. UROXATRAL [Concomitant]
  20. SILVER SULFADIAZINE [Concomitant]
  21. MECLIZINE [Concomitant]
  22. ADVIL LIQUI-GELS [Concomitant]
  23. COLCHICINE [Concomitant]
  24. HYDROCODONE [Concomitant]
  25. RANEXA [Concomitant]
  26. METANX [Concomitant]
  27. KLOR-CON [Concomitant]

REACTIONS (1)
  - CARDIAC FAILURE CONGESTIVE [None]
